FAERS Safety Report 10476601 (Version 2)
Quarter: 2014Q4

REPORT INFORMATION
  Report Type: Report from Study
  Country: US (occurrence: US)
  Receive Date: 20140925
  Receipt Date: 20141001
  Transmission Date: 20150528
  Serious: Yes (Other)
  Sender: FDA-Public Use
  Company Number: US-SA-2014SA131251

PATIENT
  Sex: Male

DRUGS (2)
  1. NOVOLOG [Concomitant]
     Active Substance: INSULIN ASPART
  2. LANTUS [Suspect]
     Active Substance: INSULIN GLARGINE
     Indication: DIABETES MELLITUS
     Dosage: PRODUCT STARTED: 4 OR 5 YEARS AGO?DOSE: 30 UNITS AM AND 30 UNITS PM
     Route: 065

REACTIONS (2)
  - Drug administration error [Unknown]
  - Prostate cancer [Unknown]

NARRATIVE: CASE EVENT DATE: 2012
